FAERS Safety Report 11182329 (Version 2)
Quarter: 2015Q2

REPORT INFORMATION
  Report Type: Spontaneous
  Country: RU (occurrence: RU)
  Receive Date: 20150611
  Receipt Date: 20150623
  Transmission Date: 20150821
  Serious: Yes (Hospitalization, Other)
  Sender: FDA-Public Use
  Company Number: RU-MERCK-1505RUS014491

PATIENT
  Age: 62 Year
  Sex: Male
  Weight: 104 kg

DRUGS (3)
  1. VICTRELIS [Suspect]
     Active Substance: BOCEPREVIR
     Dosage: 800 MG THRICE DAILY (12 CAPSULES PER DAY)
     Route: 048
     Dates: start: 2014, end: 2015
  2. PEGINTRON [Suspect]
     Active Substance: PEGINTERFERON ALFA-2B
     Dosage: 150 MICROGRAM, ONCE A WEEK
     Route: 058
     Dates: start: 201408, end: 2015
  3. REBETOL [Suspect]
     Active Substance: RIBAVIRIN
     Dosage: 600 MG, TWICE DAILY
     Dates: start: 201408, end: 2015

REACTIONS (7)
  - Transaminases increased [Not Recovered/Not Resolved]
  - Depression [Unknown]
  - Hepatitis C virus test positive [Not Recovered/Not Resolved]
  - Pancytopenia [Unknown]
  - Thrombocytopenia [Unknown]
  - Abdominal pain upper [Unknown]
  - Leukopenia [Unknown]

NARRATIVE: CASE EVENT DATE: 2014
